FAERS Safety Report 7021507 (Version 2)
Quarter: 2014Q2

REPORT INFORMATION
  Report Type: Spontaneous
  Country: ES (occurrence: ES)
  Receive Date: 20090612
  Receipt Date: 20140404
  Transmission Date: 20141212
  Serious: Yes (Death, Other)
  Sender: FDA-Public Use
  Company Number: ES-CELGENEUS-144-21880-09060351

PATIENT
  Age: 70 Year
  Sex: Male

DRUGS (5)
  1. REVLIMID [Suspect]
     Indication: PLASMA CELL MYELOMA
     Dosage: 25 MILLIGRAM
     Route: 048
     Dates: start: 200812
  2. REVLIMID [Suspect]
     Dosage: 10 MILLIGRAM
     Route: 048
     Dates: start: 200812
  3. REVLIMID [Suspect]
     Dosage: 5 MILLIGRAM
     Route: 048
     Dates: end: 201306
  4. ARANESP [Concomitant]
     Indication: PLASMA CELL MYELOMA
     Dosage: 500 MICROGRAM
     Route: 065
  5. NEUPOGEN 30 [Concomitant]
     Indication: PLASMA CELL MYELOMA
     Route: 065

REACTIONS (5)
  - Urosepsis [Fatal]
  - Hypertransaminasaemia [Recovering/Resolving]
  - Rash [Recovering/Resolving]
  - Respiratory tract infection [Unknown]
  - Plasma cell myeloma recurrent [Unknown]
